FAERS Safety Report 9909621 (Version 1)
Quarter: 2014Q1

REPORT INFORMATION
  Report Type: Spontaneous
  Country: US (occurrence: US)
  Receive Date: 20140219
  Receipt Date: 20140219
  Transmission Date: 20141002
  Serious: Yes (Hospitalization)
  Sender: FDA-Public Use
  Company Number: US-GLAXOSMITHKLINE-A1060679A

PATIENT
  Age: 28 Year
  Sex: Female

DRUGS (8)
  1. VALTREX [Suspect]
     Indication: HERPES VIRUS INFECTION
     Dosage: 1TAB PER DAY
     Route: 065
     Dates: start: 2006
  2. LAMICTAL [Suspect]
     Indication: PRODUCT USED FOR UNKNOWN INDICATION
     Dosage: 20MG UNKNOWN
     Route: 065
  3. UNKNOWN MEDICATION [Suspect]
     Indication: BIPOLAR DISORDER
     Route: 065
  4. TRILEPTAL [Concomitant]
  5. PROTONIX [Concomitant]
  6. BUSPAR [Concomitant]
  7. CONTRACEPTIVE PILL [Concomitant]
  8. SLEEPING PILL [Concomitant]

REACTIONS (3)
  - Nephrolithiasis [Not Recovered/Not Resolved]
  - Nephrolithiasis [Unknown]
  - Renal colic [Unknown]
